FAERS Safety Report 6013287-9 (Version None)
Quarter: 2008Q4

REPORT INFORMATION
  Report Type: 
  Country: None (occurrence: None)
  Receive Date: 20081219
  Receipt Date: 20081210
  Transmission Date: 20090506
  Serious: Yes (Other)
  Sender: FDA-Public Use
  Company Number: JP-AVENTIS-200813816JP

PATIENT
  Sex: Female

DRUGS (4)
  1. DOCETAXEL [Suspect]
  2. CARBOPLATIN [Suspect]
  3. CARBAMAZEPINE [Concomitant]
     Route: 048
  4. CARBAMAZEPINE [Concomitant]
     Route: 048

REACTIONS (1)
  - RHABDOMYOLYSIS [None]
